FAERS Safety Report 23716422 (Version 1)
Quarter: 2024Q2

REPORT INFORMATION
  Report Type: Spontaneous
  Country: CN (occurrence: CN)
  Receive Date: 20240408
  Receipt Date: 20240408
  Transmission Date: 20240716
  Serious: Yes (Life-Threatening)
  Sender: FDA-Public Use
  Company Number: CN-91440300279544901A-J2024HPR000188

PATIENT
  Age: 68 Year
  Sex: Male
  Weight: 63.5 kg

DRUGS (8)
  1. ENOXAPARIN SODIUM [Suspect]
     Active Substance: ENOXAPARIN SODIUM
     Indication: Angina unstable
     Dosage: 0.4ML,EVERY 12 HOURS
     Dates: start: 20240310, end: 20240311
  2. CLOPIDOGREL BISULFATE [Suspect]
     Active Substance: CLOPIDOGREL BISULFATE
     Indication: Angina unstable
     Dosage: 300MG,QD
     Dates: start: 20240310, end: 20240310
  3. CLOPIDOGREL BISULFATE [Suspect]
     Active Substance: CLOPIDOGREL BISULFATE
     Indication: Angina unstable
     Dosage: 75MG,QD
     Dates: start: 20240310, end: 20240312
  4. ASPIRIN [Suspect]
     Active Substance: ASPIRIN
     Indication: Angina unstable
     Dosage: 300MG,QD
     Dates: start: 20240310, end: 20240310
  5. ASPIRIN [Suspect]
     Active Substance: ASPIRIN
     Indication: Angina unstable
     Dosage: 100MG,QD
     Dates: start: 20240310, end: 20240311
  6. Pantoprazole sodium enteric-coated tablets [Concomitant]
     Indication: Angina unstable
     Dosage: 40MG,QD
     Dates: start: 20240310, end: 20240311
  7. ATORVASTATIN CALCIUM [Concomitant]
     Active Substance: ATORVASTATIN CALCIUM
     Indication: Angina unstable
     Dosage: 40MG,QD
     Dates: start: 20240310, end: 20240310
  8. ATORVASTATIN CALCIUM [Concomitant]
     Active Substance: ATORVASTATIN CALCIUM
     Indication: Angina unstable
     Dosage: 20MG,QD
     Dates: start: 20240310, end: 20240318

REACTIONS (5)
  - Upper gastrointestinal haemorrhage [Recovering/Resolving]
  - Blood loss anaemia [Recovering/Resolving]
  - Melaena [Recovering/Resolving]
  - Eructation [Recovered/Resolved]
  - Gastrooesophageal reflux disease [Recovering/Resolving]

NARRATIVE: CASE EVENT DATE: 20240311
